FAERS Safety Report 12599997 (Version 1)
Quarter: 2016Q3

REPORT INFORMATION
  Report Type: Spontaneous
  Country: CN (occurrence: CN)
  Receive Date: 20160727
  Receipt Date: 20160727
  Transmission Date: 20161109
  Serious: Yes (Hospitalization)
  Sender: FDA-Public Use
  Company Number: CN-PFIZER INC-2016357704

PATIENT
  Age: 76 Year
  Sex: Male

DRUGS (1)
  1. CORDARONE [Suspect]
     Active Substance: AMIODARONE HYDROCHLORIDE
     Indication: VENTRICULAR TACHYCARDIA
     Dosage: 0.2 G, DAILY
     Route: 048
     Dates: start: 20150418, end: 20160110

REACTIONS (2)
  - Coronary artery disease [Unknown]
  - Thyroid function test abnormal [Recovering/Resolving]

NARRATIVE: CASE EVENT DATE: 20160108
